FAERS Safety Report 7927995-3 (Version None)
Quarter: 2011Q4

REPORT INFORMATION
  Report Type: 
  Country: None (occurrence: None)
  Receive Date: 20111118
  Receipt Date: 20111109
  Transmission Date: 20120403
  Serious: Yes (Other)
  Sender: FDA-Public Use
  Company Number: US-BAYER-2011-032841

PATIENT
  Age: 29 Year
  Sex: Female
  Weight: 72.562 kg

DRUGS (5)
  1. FISH OIL [Concomitant]
     Dosage: UNK
     Dates: start: 20100101
  2. YASMIN [Suspect]
     Indication: CONTRACEPTION
     Dosage: UNK
     Dates: start: 20081110, end: 20091103
  3. PRILOSEC [Concomitant]
     Dosage: UNK
     Dates: start: 20100101
  4. DROSPIRENONE AND ETHINYL ESTRADIOL [Suspect]
     Indication: CONTRACEPTION
     Dosage: UNK
     Dates: start: 20081005, end: 20081101
  5. MULTI-VITAMINS [Concomitant]
     Dosage: UNK
     Dates: start: 20100101

REACTIONS (4)
  - GALLBLADDER DISORDER [None]
  - INJURY [None]
  - PAIN [None]
  - CHOLECYSTITIS CHRONIC [None]
